FAERS Safety Report 15902520 (Version 1)
Quarter: 2019Q1

REPORT INFORMATION
  Report Type: Spontaneous
  Country: GT (occurrence: GT)
  Receive Date: 20190201
  Receipt Date: 20190201
  Transmission Date: 20190417
  Serious: Yes (Life-Threatening)
  Sender: FDA-Public Use
  Company Number: GT-BAXTER-2019BAX001883

PATIENT
  Age: 31 Year
  Sex: Female

DRUGS (2)
  1. BUPIVACAINE INJECTION BP [Suspect]
     Active Substance: BUPIVACAINE
     Indication: SPINAL ANAESTHESIA
     Route: 065
  2. FENTANYL. [Concomitant]
     Active Substance: FENTANYL
     Indication: SPINAL ANAESTHESIA
     Route: 065

REACTIONS (1)
  - Kounis syndrome [Not Recovered/Not Resolved]
